FAERS Safety Report 20034634 (Version 1)
Quarter: 2021Q4

REPORT INFORMATION
  Report Type: Spontaneous
  Country: FR (occurrence: FR)
  Receive Date: 20211104
  Receipt Date: 20211104
  Transmission Date: 20220303
  Serious: Yes (Disabling)
  Sender: FDA-Public Use
  Company Number: FR-002147023-NVSC2021FR141227

PATIENT
  Sex: Male

DRUGS (1)
  1. CIPROFLOXACIN [Suspect]
     Active Substance: CIPROFLOXACIN
     Dosage: UNK (2 DOSES OF 500 MG), START DATE: 18-MAY-2018
     Route: 048

REACTIONS (8)
  - Myalgia [Unknown]
  - Arthralgia [Unknown]
  - Mastication disorder [Recovered/Resolved]
  - Neuralgia [Unknown]
  - Tendon pain [Unknown]
  - Musculoskeletal stiffness [Unknown]
  - Headache [Unknown]
  - Pain [Unknown]

NARRATIVE: CASE EVENT DATE: 20180501
